FAERS Safety Report 15684535 (Version 1)
Quarter: 2018Q4

REPORT INFORMATION
  Report Type: Spontaneous
  Country: FR (occurrence: FR)
  Receive Date: 20181204
  Receipt Date: 20181204
  Transmission Date: 20190205
  Serious: Yes (Hospitalization, Other)
  Sender: FDA-Public Use
  Company Number: FR-AUROBINDO-AUR-APL-2018-058389

PATIENT
  Age: 22 Year
  Sex: Female

DRUGS (4)
  1. QUETIAPINE. [Suspect]
     Active Substance: QUETIAPINE
     Indication: TOXICITY TO VARIOUS AGENTS
     Dosage: UNK
     Route: 048
     Dates: start: 20181113
  2. ANTADYS [Suspect]
     Active Substance: FLURBIPROFEN
     Indication: TOXICITY TO VARIOUS AGENTS
     Dosage: UNK
     Route: 048
     Dates: start: 20181113
  3. PRAZEPAM [Suspect]
     Active Substance: PRAZEPAM
     Indication: TOXICITY TO VARIOUS AGENTS
     Dosage: UNK
     Route: 048
     Dates: start: 20181113
  4. VENLAFAXINE [Suspect]
     Active Substance: VENLAFAXINE HYDROCHLORIDE
     Indication: TOXICITY TO VARIOUS AGENTS
     Dosage: UNK
     Route: 048
     Dates: start: 20181113

REACTIONS (2)
  - Altered state of consciousness [Recovered/Resolved]
  - Tachycardia [Recovered/Resolved]

NARRATIVE: CASE EVENT DATE: 20181114
